FAERS Safety Report 23836377 (Version 1)
Quarter: 2024Q2

REPORT INFORMATION
  Report Type: Spontaneous
  Country: US (occurrence: US)
  Receive Date: 20240509
  Receipt Date: 20240509
  Transmission Date: 20240715
  Serious: Yes (Other)
  Sender: FDA-Public Use
  Company Number: US-PFIZER INC-202400101759

PATIENT
  Age: 57 Year
  Sex: Female
  Weight: 45.36 kg

DRUGS (3)
  1. DESVENLAFAXINE SUCCINATE [Suspect]
     Active Substance: DESVENLAFAXINE SUCCINATE
     Indication: Anxiety
     Dosage: 50 MG, 1X/DAY
     Route: 048
     Dates: start: 2022, end: 2023
  2. DESVENLAFAXINE SUCCINATE [Suspect]
     Active Substance: DESVENLAFAXINE SUCCINATE
     Indication: Irritability
     Dosage: 2X25 MG, 1X/DAY
     Route: 048
     Dates: start: 2023
  3. DESVENLAFAXINE SUCCINATE [Suspect]
     Active Substance: DESVENLAFAXINE SUCCINATE
     Dosage: 25 MG, 2X/DAY
     Route: 048
     Dates: start: 202404

REACTIONS (5)
  - Foreign body in throat [Unknown]
  - Product size issue [Unknown]
  - Product solubility abnormal [Unknown]
  - Product physical issue [Unknown]
  - Off label use [Unknown]

NARRATIVE: CASE EVENT DATE: 20220101
